FAERS Safety Report 9362216 (Version 1)
Quarter: 2013Q2

REPORT INFORMATION
  Report Type: Spontaneous
  Country: US (occurrence: US)
  Receive Date: 20130622
  Receipt Date: 20130622
  Transmission Date: 20140414
  Serious: No
  Sender: FDA-Public Use
  Company Number: US-B.I. PHARMACEUTICALS,INC./RIDGEFIELD-2013-BI-17070BP

PATIENT
  Age: 56 Year
  Sex: Female
  Weight: 124 kg

DRUGS (8)
  1. COMBIVENT [Suspect]
     Indication: ASTHMA
     Dosage: STRENGTH: 20 MCG / 100 MCG; DAILY DOSE: 80 MCG/ 400 MCG
     Route: 055
     Dates: start: 20130612
  2. MICARDIS HCT [Suspect]
     Indication: HYPERTENSION
     Dosage: STRENGTH: 80 MG / 25 MG; DAILY DOSE: 80 MG/ 25 MG
     Route: 048
     Dates: start: 2005
  3. LEVOTHYROXINE [Concomitant]
     Indication: HYPOTHYROIDISM
     Dosage: 100 MCG
     Route: 048
  4. VITAMIN D [Concomitant]
     Route: 048
  5. CRESTOR [Concomitant]
     Indication: BLOOD CHOLESTEROL INCREASED
     Dosage: 5 MG
     Route: 048
  6. ALLOPURINOL [Concomitant]
     Indication: GOUT
     Dosage: 100 MG
     Route: 048
  7. HYDROCODONE [Concomitant]
     Indication: MUSCULOSKELETAL PAIN
     Dosage: STRENGTH: 10 MG/325 MG; DAILY DOSE: 60 MG/1950 MG
     Route: 048
  8. LYRICA [Concomitant]
     Indication: MUSCULOSKELETAL PAIN
     Dosage: 150 MG
     Route: 048

REACTIONS (5)
  - Dyspnoea [Recovered/Resolved]
  - Blood pressure increased [Recovered/Resolved]
  - Local swelling [Recovered/Resolved]
  - Cough [Recovered/Resolved]
  - Oropharyngeal pain [Recovered/Resolved]
